FAERS Safety Report 15678754 (Version 1)
Quarter: 2018Q4

REPORT INFORMATION
  Report Type: Spontaneous
  Country: US (occurrence: US)
  Receive Date: 20181201
  Receipt Date: 20181201
  Transmission Date: 20190205
  Serious: No
  Sender: FDA-Public Use
  Company Number: None

PATIENT
  Age: 29 Year
  Sex: Female
  Weight: 67.5 kg

DRUGS (2)
  1. JOLESSA (LEVONORGESTREL/ETHINYL ESTRADIOL TABLETS) 0.15MG/0.03MG [Suspect]
     Active Substance: ESTRADIOL\LEVONORGESTREL
     Indication: MENSTRUAL DISORDER
     Dosage: ?          QUANTITY:1 TABLET(S);?
     Route: 048
     Dates: start: 20161001
  2. JOLESSA (LEVONORGESTREL/ETHINYL ESTRADIOL TABLETS) 0.15MG/0.03MG [Suspect]
     Active Substance: ESTRADIOL\LEVONORGESTREL
     Indication: DYSMENORRHOEA
     Dosage: ?          QUANTITY:1 TABLET(S);?
     Route: 048
     Dates: start: 20161001

REACTIONS (1)
  - Drug ineffective [None]

NARRATIVE: CASE EVENT DATE: 20181126
